FAERS Safety Report 4283469-5 (Version None)
Quarter: 2004Q1

REPORT INFORMATION
  Report Type: 
  Country: None (occurrence: None)
  Receive Date: 20040120
  Receipt Date: 20030825
  Transmission Date: 20041129
  Serious: Yes (Hospitalization)
  Sender: FDA-Public Use
  Company Number: US-JNJFOC-20030705354

PATIENT
  Age: 24 Year
  Sex: Female
  Weight: 78.4723 kg

DRUGS (1)
  1. PARAGARD T 380 A (INTRAUTERINE CONTRACEPTIVE DEVICE) INTRAUTERINE DEVI [Suspect]
     Indication: CONTRACEPTION
     Dosage: 1 DOSE(S), INTRAUTERINE
     Route: 015
     Dates: start: 20030508, end: 20030627

REACTIONS (3)
  - INTRA-UTERINE CONTRACEPTIVE DEVICE EXPELLED [None]
  - METRORRHAGIA [None]
  - UTERINE SPASM [None]
